FAERS Safety Report 7311068-7 (Version None)
Quarter: 2011Q1

REPORT INFORMATION
  Report Type: 
  Country: None (occurrence: None)
  Receive Date: 20110214
  Receipt Date: 20110201
  Transmission Date: 20110831
  Serious: Yes (Other)
  Sender: FDA-Public Use
  Company Number: 2011-0214(1)

PATIENT
  Age: 15 Year
  Sex: Male
  Weight: 53 kg

DRUGS (6)
  1. INCRELEX [Suspect]
     Indication: GROWTH RETARDATION
     Dosage: 94 UNITS (47 UNITS, 2 IN 1 D); 80 UNITS (40 UNITS, 2 IN 1 D); 76 UNITS (38 UNITS, 2 IN 1 D)
     Dates: start: 20090428, end: 20090712
  2. INCRELEX [Suspect]
     Indication: GROWTH RETARDATION
     Dosage: 94 UNITS (47 UNITS, 2 IN 1 D); 80 UNITS (40 UNITS, 2 IN 1 D); 76 UNITS (38 UNITS, 2 IN 1 D)
     Dates: start: 20090713
  3. INCRELEX [Suspect]
     Indication: GROWTH RETARDATION
     Dosage: 94 UNITS (47 UNITS, 2 IN 1 D); 80 UNITS (40 UNITS, 2 IN 1 D); 76 UNITS (38 UNITS, 2 IN 1 D)
     Dates: start: 20090324, end: 20090427
  4. METHOTREXATE [Concomitant]
  5. SLOW IRON (IRON) [Concomitant]
  6. FOLIC ACID [Concomitant]

REACTIONS (1)
  - AGGRESSION [None]
